FAERS Safety Report 23571048 (Version 1)
Quarter: 2024Q1

REPORT INFORMATION
  Report Type: Spontaneous
  Country: US (occurrence: None)
  Receive Date: 20240226
  Receipt Date: 20240226
  Transmission Date: 20240410
  Serious: No
  Sender: FDA-Public Use
  Company Number: None

PATIENT
  Age: 66 Year
  Sex: Female
  Weight: 54 kg

DRUGS (3)
  1. TROPICAMIDE [Suspect]
     Active Substance: TROPICAMIDE
     Indication: Pupil dilation procedure
     Dates: start: 20240215, end: 20240215
  2. PROLIA [Concomitant]
     Active Substance: DENOSUMAB
  3. CALCIUM\VITAMIN D [Concomitant]
     Active Substance: CALCIUM\VITAMIN D

REACTIONS (1)
  - Reynold^s syndrome [None]

NARRATIVE: CASE EVENT DATE: 20240215
